FAERS Safety Report 15433298 (Version 1)
Quarter: 2018Q3

REPORT INFORMATION
  Report Type: Spontaneous
  Country: US (occurrence: US)
  Receive Date: 20180921
  Receipt Date: 20180921
  Transmission Date: 20181010
  Serious: Yes (Disabling)
  Sender: FDA-Public Use
  Company Number: None

PATIENT
  Age: 60 Year
  Sex: Female
  Weight: 68.49 kg

DRUGS (9)
  1. TIZANIDINE. [Concomitant]
     Active Substance: TIZANIDINE
  2. LORATADINE. [Concomitant]
     Active Substance: LORATADINE
  3. VALSARTAN. [Suspect]
     Active Substance: VALSARTAN
     Indication: RENAL DISORDER
     Dosage: ?          QUANTITY:30 DF DOSAGE FORM;?
     Route: 048
     Dates: start: 201607, end: 201808
  4. URSODIOL. [Concomitant]
     Active Substance: URSODIOL
  5. VITAMIN D3 [Concomitant]
     Active Substance: CHOLECALCIFEROL
  6. LOSARTAN. [Concomitant]
     Active Substance: LOSARTAN
  7. OXYCODONE [Concomitant]
     Active Substance: OXYCODONE
  8. IBUPROFEN. [Concomitant]
     Active Substance: IBUPROFEN
  9. METFORMIN [Concomitant]
     Active Substance: METFORMIN HYDROCHLORIDE

REACTIONS (4)
  - Weight decreased [None]
  - Nasopharyngitis [None]
  - Rash [None]
  - Liver disorder [None]

NARRATIVE: CASE EVENT DATE: 201808
